FAERS Safety Report 7513372-6 (Version None)
Quarter: 2011Q2

REPORT INFORMATION
  Report Type: 
  Country: None (occurrence: None)
  Receive Date: 20110531
  Receipt Date: 20110524
  Transmission Date: 20111010
  Serious: Yes (Death, Hospitalization, Other)
  Sender: FDA-Public Use
  Company Number: GB-TEVA-249545ISR

PATIENT
  Age: 29 Year
  Sex: Male
  Weight: 90 kg

DRUGS (3)
  1. CLOZAPINE [Suspect]
     Indication: SCHIZOPHRENIA
     Dosage: 300 MILLIGRAM;
     Route: 048
     Dates: start: 20070606, end: 20100526
  2. VALPROIC ACID [Suspect]
     Indication: DROP ATTACKS
     Route: 048
     Dates: start: 20080701
  3. VALPROIC ACID [Suspect]
     Indication: MYOCLONIC EPILEPSY

REACTIONS (15)
  - CARDIAC FAILURE [None]
  - DROP ATTACKS [None]
  - THROMBOCYTOPENIA [None]
  - HYPOAESTHESIA [None]
  - CARDIAC DISORDER [None]
  - MYOCLONUS [None]
  - PLATELET COUNT DECREASED [None]
  - HALLUCINATION, AUDITORY [None]
  - CONDUCTION DISORDER [None]
  - HEART VALVE REPLACEMENT [None]
  - MUSCULAR WEAKNESS [None]
  - PAIN IN EXTREMITY [None]
  - SCHIZOPHRENIA [None]
  - ABDOMINAL NEOPLASM [None]
  - OEDEMA PERIPHERAL [None]
